FAERS Safety Report 12548113 (Version 1)
Quarter: 2016Q3

REPORT INFORMATION
  Report Type: Spontaneous
  Country: US (occurrence: US)
  Receive Date: 20160712
  Receipt Date: 20160712
  Transmission Date: 20161109
  Serious: Yes (Hospitalization)
  Sender: FDA-Public Use
  Company Number: US-PROCTER+GAMBLE-GS16085212

PATIENT
  Age: 54 Year
  Sex: Female

DRUGS (1)
  1. VICKS NYQUIL COLD AND FLU NIGHTTIME RELIEF [Suspect]
     Active Substance: ACETAMINOPHEN\DEXTROMETHORPHAN HYDROBROMIDE\DOXYLAMINE SUCCINATE
     Indication: NASOPHARYNGITIS
     Dosage: ONE DOSAGE PER THE DIRECTIONS AS NEEDED
     Route: 048
     Dates: end: 20151217

REACTIONS (3)
  - Insomnia [None]
  - Nasopharyngitis [None]
  - Hallucination [Recovered/Resolved]
